FAERS Safety Report 8629204 (Version 2)
Quarter: 2012Q4

REPORT INFORMATION
  Report Type: 
  Country: BR (occurrence: BR)
  Receive Date: 20120621
  Receipt Date: 20120831
  Transmission Date: 20130627
  Serious: Yes (Hospitalization, Other)
  Sender: FDA-Public Use
  Company Number: BR-PFIZER INC-2012122201

PATIENT
  Age: 9 Month
  Sex: Male

DRUGS (1)
  1. DEPO-PROVERA [Suspect]
     Indication: CONTRACEPTION
     Dosage: 150 mg, every 3 months
     Route: 064
     Dates: start: 20110121

REACTIONS (10)
  - Maternal exposure timing unspecified [Unknown]
  - Premature baby [Unknown]
  - Low birth weight baby [Recovered/Resolved]
  - Asthenia [Recovered/Resolved]
  - Pneumonia [Unknown]
  - Movement disorder [Unknown]
  - Visual impairment [Unknown]
  - Viral infection [Unknown]
  - Pyrexia [Unknown]
  - Influenza [Unknown]
